FAERS Safety Report 10152842 (Version 1)
Quarter: 2014Q2

REPORT INFORMATION
  Report Type: Spontaneous
  Country: US (occurrence: US)
  Receive Date: 20140505
  Receipt Date: 20140505
  Transmission Date: 20141212
  Serious: No
  Sender: FDA-Public Use
  Company Number: US-ASTRAZENECA-2013SE29255

PATIENT
  Sex: Male

DRUGS (2)
  1. PRILOSEC OTC [Suspect]
     Dosage: 1 TABLET, AS DIRECTED
     Route: 048
     Dates: start: 20130314, end: 20130414
  2. ANTIHYPERTENSIVES [Concomitant]

REACTIONS (3)
  - Hypertension [Recovered/Resolved]
  - Blood pressure diastolic increased [Recovered/Resolved]
  - Incorrect drug administration duration [Unknown]
